FAERS Safety Report 5590605-7 (Version None)
Quarter: 2008Q1

REPORT INFORMATION
  Report Type: 
  Country: None (occurrence: None)
  Receive Date: 20080109
  Receipt Date: 20071222
  Transmission Date: 20080703
  Serious: Yes (Hospitalization)
  Sender: FDA-Public Use
  Company Number: ENT2007-0200

PATIENT
  Age: 83 Year
  Sex: Male
  Weight: 71.2 kg

DRUGS (1)
  1. ENTACAPONE [Suspect]
     Indication: PARKINSON'S DISEASE
     Dosage: 800 MG, 4 IN 1 D
     Dates: start: 20070719, end: 20071030

REACTIONS (5)
  - ABNORMAL BEHAVIOUR [None]
  - ASTHENIA [None]
  - DIARRHOEA [None]
  - VIRAL INFECTION [None]
  - WEIGHT DECREASED [None]
